FAERS Safety Report 24290653 (Version 1)
Quarter: 2024Q3

REPORT INFORMATION
  Report Type: Spontaneous
  Country: IN (occurrence: IN)
  Receive Date: 20240906
  Receipt Date: 20240906
  Transmission Date: 20241016
  Serious: Yes (Death, Hospitalization, Other)
  Sender: RANBAXY
  Company Number: IN-SUN PHARMACEUTICAL INDUSTRIES LTD-2024R1-466397

PATIENT
  Age: 24 Year
  Sex: Female

DRUGS (1)
  1. FUROSEMIDE [Suspect]
     Active Substance: FUROSEMIDE
     Indication: Hypertension
     Dosage: UNK
     Route: 048

REACTIONS (5)
  - Thrombotic thrombocytopenic purpura [Fatal]
  - Pulmonary embolism [Fatal]
  - Pre-eclampsia [Unknown]
  - Foetal growth restriction [Unknown]
  - Exposure during pregnancy [Unknown]
